FAERS Safety Report 4430951-3 (Version None)
Quarter: 2004Q3

REPORT INFORMATION
  Report Type: 
  Country: None (occurrence: None)
  Receive Date: 20040824
  Receipt Date: 20040816
  Transmission Date: 20050211
  Serious: Yes (Hospitalization)
  Sender: FDA-Public Use
  Company Number: AU-JNJFOC-20030902980

PATIENT
  Age: 75 Year
  Sex: Female

DRUGS (1)
  1. DAKTARIN [Suspect]
     Route: 061

REACTIONS (3)
  - DRUG INEFFECTIVE [None]
  - PNEUMONIA [None]
  - SKIN DISCOLOURATION [None]
